FAERS Safety Report 4486134-4 (Version None)
Quarter: 2004Q4

REPORT INFORMATION
  Report Type: 
  Country: None (occurrence: None)
  Receive Date: 20041026
  Receipt Date: 20041014
  Transmission Date: 20050328
  Serious: Yes (Hospitalization)
  Sender: FDA-Public Use
  Company Number: IL-MERCK-0410ISR00017

PATIENT
  Age: 50 Year
  Sex: Female

DRUGS (4)
  1. VIOXX [Suspect]
     Indication: ARTHRITIS
     Route: 048
     Dates: start: 19990101
  2. VIOXX [Suspect]
     Route: 048
  3. VIOXX [Suspect]
     Indication: BACK PAIN
     Route: 048
     Dates: start: 19990101
  4. VIOXX [Suspect]
     Route: 048

REACTIONS (2)
  - CEREBROVASCULAR ACCIDENT [None]
  - HYPERTENSION [None]
